FAERS Safety Report 18432917 (Version 2)
Quarter: 2021Q2

REPORT INFORMATION
  Report Type: Spontaneous
  Country: US (occurrence: US)
  Receive Date: 20201027
  Receipt Date: 20210423
  Transmission Date: 20210717
  Serious: Yes (Other)
  Sender: FDA-Public Use
  Company Number: US-PFIZER INC-2020415489

PATIENT
  Age: 56 Year
  Sex: Female
  Weight: 61.22 kg

DRUGS (7)
  1. IBRANCE [Suspect]
     Active Substance: PALBOCICLIB
     Indication: BREAST CANCER
     Dosage: 125 MG, CYCLIC (ONCE DAILY FOR 21 DAYS)
     Route: 048
     Dates: start: 20200913
  2. LETROZOLE. [Concomitant]
     Active Substance: LETROZOLE
  3. XARELTO [Concomitant]
     Active Substance: RIVAROXABAN
  4. LORATADINE. [Concomitant]
     Active Substance: LORATADINE
  5. PANTOPRAZOLE SODIUM. [Concomitant]
     Active Substance: PANTOPRAZOLE SODIUM
  6. TUMS [Concomitant]
     Active Substance: CALCIUM CARBONATE
  7. CITALOPRAM [Concomitant]
     Active Substance: CITALOPRAM HYDROBROMIDE

REACTIONS (3)
  - Fatigue [Unknown]
  - Pulmonary thrombosis [Unknown]
  - Blood test abnormal [Unknown]
